FAERS Safety Report 7471258-X (Version None)
Quarter: 2011Q2

REPORT INFORMATION
  Report Type: 
  Country: None (occurrence: None)
  Receive Date: 20110510
  Receipt Date: 20110504
  Transmission Date: 20111010
  Serious: Yes (Other)
  Sender: FDA-Public Use
  Company Number: US-ABBOTT-11P-163-0716003-00

PATIENT
  Sex: Female
  Weight: 81.72 kg

DRUGS (15)
  1. METHOTREXATE [Concomitant]
     Indication: RHEUMATOID ARTHRITIS
  2. SYNTHROID [Concomitant]
     Indication: HYPOTHYROIDISM
  3. HUMIRA [Suspect]
     Route: 058
     Dates: start: 20110201
  4. PREDNISONE [Suspect]
     Route: 048
     Dates: start: 20110101, end: 20110101
  5. PREDNISONE [Suspect]
     Route: 048
     Dates: start: 20110101
  6. IRON [Concomitant]
     Indication: MINERAL SUPPLEMENTATION
  7. HUMIRA [Suspect]
     Indication: RHEUMATOID ARTHRITIS
     Dosage: ONCE, 1ST INJECTION
     Route: 058
     Dates: start: 20110101, end: 20110101
  8. HUMIRA [Suspect]
     Route: 058
     Dates: start: 20110314, end: 20110418
  9. FLECAINIDE ACETATE [Concomitant]
     Indication: EXTRASYSTOLES
  10. FLECAINIDE ACETATE [Concomitant]
     Indication: VENTRICULAR EXTRASYSTOLES
  11. VITAMIN B-12 [Concomitant]
     Indication: VITAMIN SUPPLEMENTATION
  12. PREDNISONE [Suspect]
     Indication: RHEUMATOID ARTHRITIS
     Route: 048
     Dates: start: 20110101, end: 20110101
  13. PREDNISONE [Suspect]
     Route: 048
     Dates: start: 20110101
  14. COZAAR [Concomitant]
     Indication: HYPERTENSION
  15. FOLIC ACID [Concomitant]
     Indication: VITAMIN SUPPLEMENTATION

REACTIONS (13)
  - MIGRAINE WITH AURA [None]
  - DEVICE ISSUE [None]
  - HYPOGLYCAEMIA [None]
  - WRONG TECHNIQUE IN DRUG USAGE PROCESS [None]
  - DIZZINESS [None]
  - SINUSITIS [None]
  - DRUG DOSE OMISSION [None]
  - FEELING ABNORMAL [None]
  - MIGRAINE [None]
  - TREMOR [None]
  - VISUAL IMPAIRMENT [None]
  - EYE DISORDER [None]
  - SENSORY DISTURBANCE [None]
